FAERS Safety Report 12968194 (Version 1)
Quarter: 2016Q4

REPORT INFORMATION
  Report Type: Spontaneous
  Country: NL (occurrence: NL)
  Receive Date: 20161123
  Receipt Date: 20161123
  Transmission Date: 20170207
  Serious: Yes (Other)
  Sender: FDA-Public Use
  Company Number: NL-TEVA-713160ACC

PATIENT
  Age: 64 Year
  Sex: Female

DRUGS (16)
  1. TEMAZEPAM TABLET 10MG [Concomitant]
     Dosage: 10 MILLIGRAM DAILY; 1 TIME DAILY 1 PIECE
     Route: 048
     Dates: start: 20120904, end: 20160819
  2. DESLORATADINE TABLET 5MG [Concomitant]
     Dosage: 5 MILLIGRAM DAILY; 1 TIME DAILY 1 PIECE
     Route: 048
     Dates: start: 20070829, end: 20160923
  3. MONTELUKAST ABDI KAUWTABLET 4MG - NON-CURRENT DRUG [Concomitant]
     Dosage: 10 MILLIGRAM DAILY; 1 TIME DAILY 1 PIECE
     Route: 048
     Dates: start: 20160107
  4. CALCIUMCARB/COLECALC KAUWTB 2,5G/800IE (1000MG CA) [Concomitant]
     Dosage: 1 DOSAGE FORMS DAILY; 1 TIME DAILY 1 PIECE
     Route: 048
     Dates: start: 20150915
  5. RISEDRONATE NATRIUM [Suspect]
     Active Substance: RISEDRONATE SODIUM
     Indication: OSTEOPOROSIS
     Dosage: 5 MILLIGRAM DAILY; 1 TIME PER DAY 1 PIECE (S)
     Route: 048
     Dates: start: 20150217, end: 20160922
  6. LOSARTAN TABLET FO  50MG [Concomitant]
     Active Substance: LOSARTAN
     Dosage: 50 MILLIGRAM DAILY; 1 TIME DAILY 1 PIECE
     Route: 048
     Dates: start: 20061107
  7. HYDROCHLOORTHIAZIDE TABLET 25MG [Concomitant]
     Active Substance: HYDROCHLOROTHIAZIDE
     Dosage: 25 MILLIGRAM DAILY; 1 TIME DAILY 1 PIECE
     Route: 048
     Dates: start: 20050224
  8. TAMOXIFEN TABLET 20MG [Concomitant]
     Active Substance: TAMOXIFEN
     Dosage: 20 MILLIGRAM DAILY; 1 TIME DAILY 1 PIECE
     Route: 048
     Dates: start: 20141210
  9. BECLOMETASON NEUSSPRAY 50UG/DO [Concomitant]
     Dosage: 200 MICROGRAM DAILY; 2 TIMES DAILY 2 PIECES
     Route: 045
     Dates: start: 19970521
  10. LIDOCAINE INJECTIE/INFUUS [Concomitant]
     Dosage: DOSAGE NOT COMPLETED
     Route: 065
     Dates: start: 20160426, end: 20160725
  11. VENTOLIN  100 AER CFKVR 100MCG/DO SPBS 200DO+INHAL [Concomitant]
     Dosage: IF NECESSARY 1-2
     Route: 055
     Dates: start: 20030130
  12. SEREVENT AEROSOL 25MCG/DO CFKVR SPBS 120DO + INH [Concomitant]
     Dosage: 50 MICROGRAM DAILY; 2 TIMES DAILY 1 PIECE
     Route: 055
     Dates: start: 19990209
  13. OPATANOL OOGDRUPPELS 1MG/ML FLACON 5ML [Concomitant]
     Dosage: 2 GTT DAILY; 2 TIMES DAILY 1 PIECE
     Route: 047
     Dates: start: 20160426, end: 20160814
  14. LOMUDAL FORTE AEROSOL 5MG/DO SPBS 112DO [Concomitant]
     Dosage: USED ACCORDING TO PRESCRIPTION
     Route: 055
     Dates: start: 20010717
  15. RANITIDINE TABLET 150MG [Concomitant]
     Dosage: 150 MILLIGRAM DAILY; 1 TIME DAILY 1 PIECE
     Route: 048
     Dates: start: 20000324
  16. KENACORT A 40 INJECTIESUSPENSIE 40MG/ML AMPUL 1ML [Concomitant]
     Dosage: ACCORDING TO PRESCRIPTION
     Route: 065
     Dates: start: 20050105, end: 20160725

REACTIONS (1)
  - Cutaneous lupus erythematosus [Recovered/Resolved]

NARRATIVE: CASE EVENT DATE: 20160505
